FAERS Safety Report 4862793-9 (Version None)
Quarter: 2005Q4

REPORT INFORMATION
  Report Type: 
  Country: None (occurrence: None)
  Receive Date: 20051221
  Receipt Date: 20050620
  Transmission Date: 20060501
  Serious: No
  Sender: FDA-Public Use
  Company Number: US-BRISTOL-MYERS SQUIBB COMPANY-13009667

PATIENT
  Age: 48 Year
  Sex: Male

DRUGS (3)
  1. REYATAZ [Suspect]
     Indication: ACQUIRED IMMUNODEFICIENCY SYNDROME
     Route: 048
     Dates: start: 20050101
  2. REYATAZ [Suspect]
     Indication: HIV INFECTION
     Route: 048
     Dates: start: 20050101
  3. COMBIVIR [Concomitant]

REACTIONS (1)
  - CHEST DISCOMFORT [None]
